FAERS Safety Report 25720573 (Version 1)
Quarter: 2025Q3

REPORT INFORMATION
  Report Type: Spontaneous
  Country: EU (occurrence: EU)
  Receive Date: 20250825
  Receipt Date: 20250825
  Transmission Date: 20251020
  Serious: Yes (Death)
  Sender: SAMSUNG BIOEPIS
  Company Number: None

PATIENT
  Age: 51 Year
  Sex: Male
  Weight: 60 kg

DRUGS (1)
  1. INFLIXIMAB [Suspect]
     Active Substance: INFLIXIMAB
     Indication: Immunology test
     Dates: start: 20250505

REACTIONS (2)
  - Immune-mediated myelitis [Fatal]
  - Off label use [Unknown]

NARRATIVE: CASE EVENT DATE: 20250525
